FAERS Safety Report 14139221 (Version 2)
Quarter: 2017Q4

REPORT INFORMATION
  Report Type: Spontaneous
  Country: JP (occurrence: JP)
  Receive Date: 20171028
  Receipt Date: 20171102
  Transmission Date: 20180321
  Serious: Yes (Other)
  Sender: FDA-Public Use
  Company Number: JP-ROCHE-2014931

PATIENT
  Age: 62 Year
  Sex: Male

DRUGS (5)
  1. HERCEPTIN [Suspect]
     Active Substance: TRASTUZUMAB
     Dosage: DOSAGE IS UNCERTAIN.
     Route: 041
  2. DOCETAXEL. [Concomitant]
     Active Substance: DOCETAXEL
     Indication: SALIVARY GLAND CANCER
     Dosage: DOSAGE IS UNCERTAIN.
     Route: 041
  3. HERCEPTIN [Suspect]
     Active Substance: TRASTUZUMAB
     Indication: SALIVARY GLAND CANCER
     Dosage: DOSAGE IS UNCERTAIN.
     Route: 041
  4. HERCEPTIN [Suspect]
     Active Substance: TRASTUZUMAB
     Dosage: DOSAGE IS UNCERTAIN.
     Route: 041
  5. HERCEPTIN [Suspect]
     Active Substance: TRASTUZUMAB
     Dosage: DOSAGE IS UNCERTAIN.
     Route: 041

REACTIONS (7)
  - Dyspnoea [Unknown]
  - Skin disorder [Unknown]
  - Bone marrow failure [Unknown]
  - Off label use [Unknown]
  - Bronchostenosis [Unknown]
  - Pleural effusion [Unknown]
  - Oedema mucosal [Unknown]
